FAERS Safety Report 11404010 (Version 2)
Quarter: 2015Q3

REPORT INFORMATION
  Report Type: Spontaneous
  Country: NL (occurrence: NL)
  Receive Date: 20150821
  Receipt Date: 20150903
  Transmission Date: 20151125
  Serious: Yes (Other)
  Sender: FDA-Public Use
  Company Number: NL-PFIZER INC-2015268278

PATIENT
  Age: 65 Year
  Sex: Female

DRUGS (4)
  1. SEROXAT [Concomitant]
     Active Substance: PAROXETINE HYDROCHLORIDE
     Dosage: 10 MG, 1X/DAY
  2. RANITIDINE [Concomitant]
     Active Substance: RANITIDINE\RANITIDINE HYDROCHLORIDE
     Indication: STENT PLACEMENT
     Dosage: 30 MG, 2X/DAY
  3. ATORVASTATINE PFIZER [Suspect]
     Active Substance: ATORVASTATIN
     Indication: TYPE IIA HYPERLIPIDAEMIA
     Dosage: 40 MG, 1X/DAY
     Route: 048
     Dates: end: 20150810
  4. FENPROCOUMON [Concomitant]
     Active Substance: PHENPROCOUMON
     Dosage: UNK, 1X/DAY

REACTIONS (16)
  - Mental disorder [Recovered/Resolved]
  - Gait disturbance [Recovered/Resolved]
  - Nervous system disorder [Recovered/Resolved]
  - Abdominal distension [Recovered/Resolved]
  - Abdominal pain [Recovered/Resolved]
  - Eructation [Recovered/Resolved]
  - Feeling abnormal [Recovered/Resolved]
  - Skin haemorrhage [Recovered/Resolved]
  - Blood urine present [Recovered/Resolved]
  - Libido decreased [Recovered/Resolved]
  - Muscle disorder [Recovered/Resolved]
  - Contusion [Recovered/Resolved]
  - Depression [Recovered/Resolved]
  - Violence-related symptom [Recovered/Resolved]
  - Spontaneous haemorrhage [Recovered/Resolved]
  - Abdominal pain upper [Recovered/Resolved]
